FAERS Safety Report 11054730 (Version 1)
Quarter: 2015Q2

REPORT INFORMATION
  Report Type: Spontaneous
  Country: EG (occurrence: EG)
  Receive Date: 20150422
  Receipt Date: 20150422
  Transmission Date: 20150821
  Serious: Yes (Death, Hospitalization, Other)
  Sender: FDA-Public Use
  Company Number: EG-NOVOPROD-445683

PATIENT
  Age: 61 Year
  Sex: Female

DRUGS (13)
  1. LASIX [Concomitant]
     Active Substance: FUROSEMIDE
     Indication: FLUID RETENTION
     Dosage: 0.5 TAB, QD (STARTED 6 MONTHS BEFORE DEATH)
     Route: 048
  2. PLASMA [Concomitant]
     Active Substance: HUMAN PLASMA
     Dosage: ONCE PER WEEK, AT THE BLOOD BANK
  3. SILYMARIN [Concomitant]
     Active Substance: MILK THISTLE
     Indication: SUPPLEMENTATION THERAPY
     Dosage: SACHET IN HALF CUP OF WATER, TID (STARTED TWO AND HALF YEARS AGO)
  4. MIXTARD HUMAN 70/30 [Suspect]
     Active Substance: INSULIN HUMAN
     Dosage: 60 U, QD (40 UNITS AT MORNING AND 20 UNITS AT NIGHT.)
     Route: 058
     Dates: end: 2014
  5. ACTRAPID [Suspect]
     Active Substance: INSULIN HUMAN
     Indication: DIABETES MELLITUS
     Dosage: 58 IU, QD (40 IU AT MORNING, 18 IU AT NIGHT)
     Route: 058
     Dates: start: 2014
  6. ALDACTONE [Concomitant]
     Active Substance: SPIRONOLACTONE
     Dosage: 2 TAB, QD
     Route: 048
  7. PLASMA [Concomitant]
     Active Substance: HUMAN PLASMA
     Dosage: TWICE PER WEEK, AT THE BLOOD BANK
     Dates: start: 2012
  8. MIXTARD HUMAN 70/30 [Suspect]
     Active Substance: INSULIN HUMAN
     Indication: DIABETES MELLITUS
     Dosage: 45 U, QD (30 UNITS MORNING, 15 UNITS AT NIGHT (SUBCUTANEOUS AT ARM LEG AND ABDOMEN))
     Route: 058
     Dates: start: 2010
  9. MIXTARD 50 PENFILL [Suspect]
     Active Substance: INSULIN HUMAN
     Indication: DIABETES MELLITUS
     Dosage: 25 IU, QD (AT LUNCH IN ARM, LEG, ABDOMEN)
     Route: 058
     Dates: start: 2014
  10. PARAZOL [Concomitant]
     Dosage: BID, LAST 4 MONTHS BEFORE DEATH
     Route: 065
  11. CAPOZIDE [Concomitant]
     Active Substance: CAPTOPRIL\HYDROCHLOROTHIAZIDE
     Indication: HYPERTENSION
     Dosage: SINGLE
     Route: 048
     Dates: start: 2012
  12. ANTOPRAL [Concomitant]
     Indication: GASTROOESOPHAGEAL REFLUX DISEASE
     Dosage: 1 TAB, WHEN NEEDED FROM 1.5 YEARS AGO
     Route: 065
  13. ALDACTONE [Concomitant]
     Active Substance: SPIRONOLACTONE
     Indication: FLUID RETENTION
     Dosage: 1 TAB, QD
     Route: 048
     Dates: start: 2005

REACTIONS (3)
  - Blood glucose fluctuation [Not Recovered/Not Resolved]
  - Blood glucose increased [Recovering/Resolving]
  - Coma hepatic [Fatal]

NARRATIVE: CASE EVENT DATE: 201409
